FAERS Safety Report 10112336 (Version 1)
Quarter: 2014Q2

REPORT INFORMATION
  Report Type: Spontaneous
  Country: FR (occurrence: FR)
  Receive Date: 20140425
  Receipt Date: 20140425
  Transmission Date: 20141212
  Serious: Yes (Other)
  Sender: FDA-Public Use
  Company Number: FR-UCBSA-118930

PATIENT
  Age: 50 Year
  Sex: Male

DRUGS (9)
  1. VIMPAT [Suspect]
     Dosage: INCREASE OF 50 MG EVERY 5 DAYS UP TO 350MG/DAY
     Route: 048
     Dates: start: 20130730, end: 20140130
  2. LOVENOX [Concomitant]
     Dosage: IN AMPOULE 4000 IU ANTIXA/0.4 ML
     Route: 058
  3. SEROPLEX [Concomitant]
     Dosage: 10MG DOSAGE STRENGTH
     Route: 048
     Dates: start: 20131217, end: 20140125
  4. ZOLPIDEM [Concomitant]
     Dosage: 10 MG 1/PRN
     Route: 048
  5. TRIATEC [Concomitant]
     Dosage: SCORED TABLET
     Route: 048
  6. CONTRAMAL [Concomitant]
     Route: 048
  7. DOLIPRANE [Concomitant]
     Route: 048
  8. URBANYL [Concomitant]
     Route: 048
  9. METHOTREXATE [Concomitant]
     Indication: PSORIASIS
     Dosage: 2.5MG, 6 TABLET ON SUNDAY

REACTIONS (4)
  - Suicidal ideation [Recovered/Resolved]
  - Depressive symptom [Recovered/Resolved]
  - Motor dysfunction [Unknown]
  - Neurologic neglect syndrome [Unknown]
